FAERS Safety Report 4535078-8 (Version None)
Quarter: 2004Q4

REPORT INFORMATION
  Report Type: 
  Country: None (occurrence: None)
  Receive Date: 20041214
  Receipt Date: 20040830
  Transmission Date: 20050328
  Serious: Yes (Other)
  Sender: FDA-Public Use
  Company Number: 2004230754US

PATIENT
  Sex: Female

DRUGS (2)
  1. BEXTRA [Suspect]
     Indication: JOINT INJURY
     Dosage: 10 MG
  2. COUMADIN [Suspect]
     Dates: start: 19920101

REACTIONS (1)
  - INTERNATIONAL NORMALISED RATIO INCREASED [None]
